FAERS Safety Report 18257054 (Version 2)
Quarter: 2020Q4

REPORT INFORMATION
  Report Type: Report from Study
  Country: BR (occurrence: BR)
  Receive Date: 20200911
  Receipt Date: 20201207
  Transmission Date: 20210113
  Serious: No
  Sender: FDA-Public Use
  Company Number: NVSC2020BR247862

PATIENT
  Sex: Female

DRUGS (3)
  1. AZORGA [Suspect]
     Active Substance: BRINZOLAMIDE\TIMOLOL MALEATE
     Indication: GLAUCOMA
     Dosage: 1 DF, Q12H (01 DROP ON EACH EYE)
     Route: 047
     Dates: start: 2015
  2. LUMIGAN [Concomitant]
     Active Substance: BIMATOPROST
     Indication: GLAUCOMA
     Dosage: 1 DF, QD (01 DROP ON EACH EYE)(DID NOT KNOW HOW TO INFORM THE MANUFACTURER PHARMACEUTICAL COMPANY)
     Route: 047
     Dates: start: 2015
  3. BENICAR ANLO [Concomitant]
     Active Substance: AMLODIPINE BESYLATE\OLMESARTAN MEDOXOMIL
     Indication: HYPERTENSION
     Dosage: 1 DF, QD (STARTED MANY YEARS AGO, 01 TABLET OF 40/5MG)((DID NOT KNOW HOW TO INFORM THE MANUFACTURER
     Route: 048

REACTIONS (2)
  - Gait disturbance [Not Recovered/Not Resolved]
  - Fatigue [Not Recovered/Not Resolved]
